FAERS Safety Report 8415758-4 (Version None)
Quarter: 2012Q2

REPORT INFORMATION
  Report Type: 
  Country: None (occurrence: None)
  Receive Date: 20120606
  Receipt Date: 20120530
  Transmission Date: 20120825
  Serious: Yes (Death, Other)
  Sender: FDA-Public Use
  Company Number: JP-ASTELLAS-2012US003041

PATIENT
  Sex: Male
  Weight: 55 kg

DRUGS (12)
  1. ERLOTINIB HYDROCHLORIDE [Suspect]
     Dosage: 100 MG, UID/QD
     Dates: start: 20111005, end: 20111011
  2. GEMCITABINE HYDROCHLORIDE [Concomitant]
     Dosage: 750 MG/M2, UID/QD
     Route: 041
     Dates: start: 20110824, end: 20110824
  3. LOPEMIN [Concomitant]
     Indication: PRODUCT USED FOR UNKNOWN INDICATION
     Dosage: 1 MG, PRN
     Route: 048
  4. GEMCITABINE HYDROCHLORIDE [Concomitant]
     Indication: PANCREATIC CARCINOMA
     Dosage: 750 MG/M2, UID/QD
     Route: 041
     Dates: start: 20110803, end: 20110803
  5. PREDNISOLONE [Concomitant]
     Indication: PRODUCT USED FOR UNKNOWN INDICATION
     Dosage: 10 MG, UID/QD
     Route: 048
  6. AMLODIPINE [Concomitant]
     Indication: HYPERTENSION
     Dosage: 5 MG, UID/QD
     Route: 048
  7. GEMCITABINE HYDROCHLORIDE [Concomitant]
     Dosage: 750 MG/M2, UID/QD
     Route: 041
     Dates: start: 20111005, end: 20111005
  8. TOUGHMAC E [Concomitant]
     Indication: PRODUCT USED FOR UNKNOWN INDICATION
     Dosage: 3 DF, UID/QD
     Route: 048
  9. ERLOTINIB HYDROCHLORIDE [Suspect]
     Indication: PANCREATIC CARCINOMA
     Dosage: 100 MG, UID/QD
     Route: 048
     Dates: start: 20110803, end: 20110831
  10. MIYA BM [Concomitant]
     Indication: PRODUCT USED FOR UNKNOWN INDICATION
     Dosage: 3 G, UID/QD
     Route: 048
  11. MOBIC [Concomitant]
     Indication: PRODUCT USED FOR UNKNOWN INDICATION
     Dosage: 10 MG, UID/QD
     Route: 048
  12. GEMCITABINE HYDROCHLORIDE [Concomitant]
     Dosage: 750 MG/M2, UID/QD
     Route: 041
     Dates: start: 20110810, end: 20110810

REACTIONS (2)
  - CHOLANGITIS [None]
  - NEOPLASM MALIGNANT [None]
